FAERS Safety Report 8336400-7 (Version None)
Quarter: 2012Q2

REPORT INFORMATION
  Report Type: 
  Country: None (occurrence: None)
  Receive Date: 20120501
  Receipt Date: 20120419
  Transmission Date: 20120825
  Serious: Yes (Disabling, Other)
  Sender: FDA-Public Use
  Company Number: 2012MA005112

PATIENT
  Sex: Female
  Weight: 264 kg

DRUGS (17)
  1. ACIPHEX [Concomitant]
  2. ALBUTEROL [Concomitant]
  3. AMLODIPINE [Concomitant]
  4. LISINOPRIL [Concomitant]
  5. BETAMETHASONE [Concomitant]
  6. PROVENTIL [Concomitant]
  7. METOCLOPRAMIDE [Suspect]
     Indication: GASTROOESOPHAGEAL REFLUX DISEASE
     Dates: start: 19990101, end: 20070101
  8. WARFARIN SODIUM [Concomitant]
  9. CREAM (UNSPECIFIED) [Concomitant]
  10. INSULIN [Concomitant]
  11. NOVOLIN N [Concomitant]
  12. TAMOXIFEN CITRATE [Concomitant]
  13. AZITHROMYCIN [Concomitant]
  14. FOSAMAX [Concomitant]
  15. HYDROXYZINE PAMOATE [Concomitant]
  16. GUAIFENESIN [Concomitant]
  17. MOBIC [Concomitant]

REACTIONS (24)
  - VENOUS INSUFFICIENCY [None]
  - MUSCULOSKELETAL PAIN [None]
  - HYPERTENSION [None]
  - BRONCHITIS [None]
  - OEDEMA [None]
  - GRIMACING [None]
  - KYPHOSIS [None]
  - RASH [None]
  - DYSARTHRIA [None]
  - LOSS OF CONSCIOUSNESS [None]
  - PETECHIAE [None]
  - DEEP VEIN THROMBOSIS [None]
  - SYNCOPE [None]
  - MOVEMENT DISORDER [None]
  - GAIT DISTURBANCE [None]
  - TONGUE BITING [None]
  - DIZZINESS [None]
  - ATRIAL FIBRILLATION [None]
  - TARDIVE DYSKINESIA [None]
  - DERMATITIS [None]
  - PAIN IN EXTREMITY [None]
  - SPEECH DISORDER [None]
  - MUSCLE TWITCHING [None]
  - EXTRAPYRAMIDAL DISORDER [None]
